FAERS Safety Report 4325446-1 (Version None)
Quarter: 2004Q1

REPORT INFORMATION
  Report Type: 
  Country: None (occurrence: None)
  Receive Date: 20040324
  Receipt Date: 20040311
  Transmission Date: 20041129
  Serious: Yes (Hospitalization)
  Sender: FDA-Public Use
  Company Number: 2004AC00028

PATIENT
  Age: 72 Year
  Sex: Male

DRUGS (6)
  1. BUPIVACAINE [Suspect]
     Indication: ANAESTHESIA
  2. HYDROCHLOROTHIAZIDE [Concomitant]
  3. GLIPIZIDE [Concomitant]
  4. LOVASTATIN [Concomitant]
  5. ENALAPRIL MALEATE [Concomitant]
  6. AMIFOSTINE [Concomitant]

REACTIONS (2)
  - BLOOD PRESSURE DECREASED [None]
  - MENTAL STATUS CHANGES [None]
